FAERS Safety Report 4740413-1 (Version None)
Quarter: 2005Q3

REPORT INFORMATION
  Report Type: 
  Country: None (occurrence: None)
  Receive Date: 20050810
  Receipt Date: 20050804
  Transmission Date: 20060218
  Serious: Yes (Other)
  Sender: FDA-Public Use
  Company Number: 2005PK01450

PATIENT
  Age: 95 Year
  Sex: Male

DRUGS (6)
  1. CANDESARTAN [Suspect]
     Indication: ESSENTIAL HYPERTENSION
     Route: 048
  2. NITRODERM [Suspect]
     Route: 062
  3. CLOPIDOGREL BISULFATE [Suspect]
     Indication: CORONARY ARTERY ATHEROSCLEROSIS
     Route: 048
     Dates: start: 20050205, end: 20050305
  4. ASPIRIN [Concomitant]
     Indication: CORONARY ARTERY ATHEROSCLEROSIS
     Route: 048
  5. DANCOR [Concomitant]
     Indication: ESSENTIAL HYPERTENSION
     Route: 048
  6. TORSEMIDE [Concomitant]
     Indication: ESSENTIAL HYPERTENSION
     Route: 048

REACTIONS (2)
  - ACUTE MYOCARDIAL INFARCTION [None]
  - AGEUSIA [None]
